FAERS Safety Report 4711029-8 (Version None)
Quarter: 2005Q3

REPORT INFORMATION
  Report Type: 
  Country: None (occurrence: None)
  Receive Date: 20050707
  Receipt Date: 20050621
  Transmission Date: 20060218
  Serious: No
  Sender: FDA-Public Use
  Company Number: 11684

PATIENT
  Sex: Female

DRUGS (1)
  1. METHOTREXATE [Suspect]

REACTIONS (5)
  - MASTITIS [None]
  - NEONATAL DISORDER [None]
  - NEONATAL INFECTIVE MASTITIS [None]
  - STAPHYLOCOCCAL INFECTION [None]
  - TRANSMISSION OF DRUG VIA SEMEN [None]
